FAERS Safety Report 9771852 (Version 1)
Quarter: 2013Q4

REPORT INFORMATION
  Report Type: Spontaneous
  Country: JP (occurrence: JP)
  Receive Date: 20131219
  Receipt Date: 20131219
  Transmission Date: 20140711
  Serious: Yes (Other)
  Sender: FDA-Public Use
  Company Number: JP-ASTRAZENECA-2013SE91749

PATIENT
  Age: 42 Year
  Sex: Male

DRUGS (7)
  1. SEROQUEL [Suspect]
     Indication: DEPRESSION
     Route: 048
     Dates: end: 20130725
  2. SEROQUEL [Suspect]
     Indication: DEPRESSION
     Route: 048
     Dates: start: 20130726, end: 20130808
  3. SEROQUEL [Suspect]
     Indication: DEPRESSION
     Route: 048
     Dates: start: 20130809, end: 20130823
  4. REFLEX [Concomitant]
     Route: 048
  5. HALRACK [Concomitant]
     Route: 048
  6. ABILIFY [Concomitant]
     Route: 048
  7. CYMBALTA [Concomitant]
     Route: 048

REACTIONS (4)
  - Glucose tolerance decreased [Not Recovered/Not Resolved]
  - Hypertriglyceridaemia [Not Recovered/Not Resolved]
  - Hypercholesterolaemia [Not Recovered/Not Resolved]
  - Off label use [Unknown]
